FAERS Safety Report 5041434-4 (Version None)
Quarter: 2006Q2

REPORT INFORMATION
  Report Type: 
  Country: None (occurrence: None)
  Receive Date: 20060626
  Receipt Date: 20060613
  Transmission Date: 20061013
  Serious: Yes (Other)
  Sender: FDA-Public Use
  Company Number: 200612498BCC

PATIENT
  Age: 77 Year
  Sex: Female

DRUGS (1)
  1. ALEVE [Suspect]
     Indication: ARTHRITIS
     Dosage: 440 MG, IRR, ORAL
     Route: 048

REACTIONS (5)
  - BLOOD COUNT ABNORMAL [None]
  - DEAFNESS [None]
  - DIFFICULTY IN WALKING [None]
  - DYSSTASIA [None]
  - GASTRIC ULCER [None]
